FAERS Safety Report 4935138-3 (Version None)
Quarter: 2006Q1

REPORT INFORMATION
  Report Type: 
  Country: None (occurrence: None)
  Receive Date: 20060302
  Receipt Date: 20060220
  Transmission Date: 20060701
  Serious: Yes (Disabling, Other)
  Sender: FDA-Public Use
  Company Number: 2006026469

PATIENT
  Age: 48 Year
  Sex: Female
  Weight: 95.2554 kg

DRUGS (2)
  1. ZOLOFT [Suspect]
     Indication: DEPRESSION
     Dosage: 100 MG (50 MG, 1 IN 1 D), ORAL
     Route: 048
     Dates: start: 20040101
  2. NEXIUM [Concomitant]

REACTIONS (11)
  - ACTIVITIES OF DAILY LIVING IMPAIRED [None]
  - ASTHENIA [None]
  - DIZZINESS [None]
  - DRUG INEFFECTIVE [None]
  - HEADACHE [None]
  - HEART RATE INCREASED [None]
  - INTRACRANIAL HYPOTENSION [None]
  - LOSS OF CONSCIOUSNESS [None]
  - NEOPLASM [None]
  - PAIN [None]
  - VERTIGO [None]
